FAERS Safety Report 24106792 (Version 2)
Quarter: 2024Q3

REPORT INFORMATION
  Report Type: Spontaneous
  Country: IT (occurrence: IT)
  Receive Date: 20240717
  Receipt Date: 20240719
  Transmission Date: 20241016
  Serious: Yes (Hospitalization)
  Sender: TAIHO ONCOLOGY INC
  Company Number: None

PATIENT
  Age: 65 Year
  Sex: Female

DRUGS (2)
  1. LONSURF [Suspect]
     Active Substance: TIPIRACIL HYDROCHLORIDE\TRIFLURIDINE
     Indication: Rectal cancer metastatic
     Dosage: 110 MG
     Route: 048
     Dates: start: 20240422, end: 20240603
  2. AVASTIN [Suspect]
     Active Substance: BEVACIZUMAB
     Indication: Rectal cancer metastatic
     Dosage: 250 MG
     Route: 042
     Dates: start: 20240422, end: 20240603

REACTIONS (2)
  - Off label use [Recovered/Resolved]
  - Pancytopenia [Recovering/Resolving]

NARRATIVE: CASE EVENT DATE: 20240422
